FAERS Safety Report 5942571-X (Version None)
Quarter: 2008Q4

REPORT INFORMATION
  Report Type: 
  Country: None (occurrence: None)
  Receive Date: 20081105
  Receipt Date: 20081027
  Transmission Date: 20090506
  Serious: Yes (Hospitalization, Disabling, Other)
  Sender: FDA-Public Use
  Company Number: US-MERCK-0807USA00242

PATIENT
  Age: 62 Year
  Sex: Female

DRUGS (4)
  1. FOSAMAX [Suspect]
     Indication: OSTEOPOROSIS
     Route: 048
     Dates: start: 20040614, end: 20070601
  2. HORMONES (UNSPECIFIED) [Concomitant]
     Indication: HORMONE REPLACEMENT THERAPY
     Route: 065
     Dates: start: 19740101, end: 20070101
  3. [THERAPY UNSPECIFIED] [Concomitant]
     Indication: DIABETES MELLITUS
     Route: 065
     Dates: start: 20000101
  4. [THERAPY UNSPECIFIED] [Concomitant]
     Indication: BLOOD CHOLESTEROL DECREASED
     Route: 065
     Dates: start: 20000101

REACTIONS (16)
  - ABSCESS [None]
  - ADVERSE DRUG REACTION [None]
  - ANXIETY [None]
  - BLOOD POTASSIUM INCREASED [None]
  - CARDIAC DISORDER [None]
  - CARDIAC FAILURE CONGESTIVE [None]
  - DEPRESSION [None]
  - HYPERTENSION [None]
  - KIDNEY INFECTION [None]
  - MASTICATION DISORDER [None]
  - OSTEOMYELITIS [None]
  - OSTEONECROSIS [None]
  - RENAL FAILURE [None]
  - RENAL FAILURE ACUTE [None]
  - SPEECH DISORDER [None]
  - TYPE 2 DIABETES MELLITUS [None]
